FAERS Safety Report 7549378-0 (Version None)
Quarter: 2011Q2

REPORT INFORMATION
  Report Type: 
  Country: None (occurrence: None)
  Receive Date: 20110615
  Receipt Date: 20030909
  Transmission Date: 20111010
  Serious: Yes (Death)
  Sender: FDA-Public Use
  Company Number: PHHO2003CA11394

PATIENT
  Sex: Female

DRUGS (1)
  1. CALCITONIN SALMON [Suspect]

REACTIONS (1)
  - DEATH [None]
